FAERS Safety Report 25271213 (Version 2)
Quarter: 2025Q2

REPORT INFORMATION
  Report Type: Spontaneous
  Country: US (occurrence: US)
  Receive Date: 20250506
  Receipt Date: 20250522
  Transmission Date: 20250717
  Serious: No
  Sender: APOTEX
  Company Number: US-APOTEX-2025AP004447

PATIENT
  Age: 80 Year
  Sex: Female

DRUGS (1)
  1. IPRATROPIUM BROMIDE [Suspect]
     Active Substance: IPRATROPIUM BROMIDE
     Indication: Seasonal allergy
     Dosage: 3 DOSAGE FORM, TID ( 2 SPRAYS IN 1 NOSTRIL AND 1 SPRAY IN THE OTHER NOSTRIL)
     Route: 045
     Dates: start: 2024

REACTIONS (3)
  - Visual impairment [Not Recovered/Not Resolved]
  - Product packaging quantity issue [Unknown]
  - Product packaging quantity issue [Unknown]

NARRATIVE: CASE EVENT DATE: 20250301
